FAERS Safety Report 11517037 (Version 2)
Quarter: 2015Q3

REPORT INFORMATION
  Report Type: Spontaneous
  Country: US (occurrence: US)
  Receive Date: 20150917
  Receipt Date: 20150921
  Transmission Date: 20151125
  Serious: Yes (Hospitalization)
  Sender: FDA-Public Use
  Company Number: US-ELI_LILLY_AND_COMPANY-US201509005226

PATIENT
  Age: 70 Year
  Sex: Female

DRUGS (3)
  1. LEVEMIR [Concomitant]
     Active Substance: INSULIN DETEMIR
  2. HUMALOG [Suspect]
     Active Substance: INSULIN LISPRO
     Indication: TYPE 2 DIABETES MELLITUS
     Dosage: 15 U, TID
     Route: 065
     Dates: start: 2005
  3. NORCO [Concomitant]
     Active Substance: ACETAMINOPHEN\HYDROCODONE BITARTRATE
     Indication: PAIN

REACTIONS (13)
  - Depressed mood [Unknown]
  - Weight increased [Unknown]
  - Drug dose omission [Unknown]
  - Blood glucose increased [Unknown]
  - Foreign body sensation in eyes [Unknown]
  - Dyspnoea [Unknown]
  - Sciatica [Unknown]
  - Visual acuity reduced [Unknown]
  - Cataract [Unknown]
  - Underdose [Unknown]
  - Fall [Unknown]
  - Intervertebral disc injury [Unknown]
  - Peripheral swelling [Unknown]

NARRATIVE: CASE EVENT DATE: 2012
